FAERS Safety Report 6071363-9 (Version None)
Quarter: 2009Q1

REPORT INFORMATION
  Report Type: 
  Country: None (occurrence: None)
  Receive Date: 20090209
  Receipt Date: 20090129
  Transmission Date: 20090719
  Serious: Yes (Other)
  Sender: FDA-Public Use
  Company Number: JP-BAXTER-2009BH001776

PATIENT
  Age: 13 Year
  Sex: Male

DRUGS (3)
  1. ENDOXAN BAXTER [Suspect]
     Indication: CONGENITAL APLASTIC ANAEMIA
     Route: 065
  2. ENDOXAN BAXTER [Suspect]
     Indication: OFF LABEL USE
     Route: 065
  3. ANTI-THYMOCYTE GLOBULIN NOS [Concomitant]
     Indication: CONGENITAL APLASTIC ANAEMIA
     Route: 065

REACTIONS (1)
  - BONE SARCOMA [None]
